FAERS Safety Report 10091727 (Version 2)
Quarter: 2014Q2

REPORT INFORMATION
  Report Type: Spontaneous
  Country: ES (occurrence: ES)
  Receive Date: 20140421
  Receipt Date: 20140422
  Transmission Date: 20141212
  Serious: Yes (Other)
  Sender: FDA-Public Use
  Company Number: ES-ABBVIE-14P-144-1227899-00

PATIENT
  Age: 16 Year
  Sex: Female

DRUGS (4)
  1. VALPROIC ACID [Suspect]
     Indication: CONVULSION
     Route: 065
  2. CARBAMAZEPINE [Suspect]
     Indication: CONVULSION
     Route: 065
  3. PHENYTOIN [Suspect]
     Indication: CONVULSION
     Route: 065
  4. PHENOBARBITAL [Suspect]
     Indication: CONVULSION
     Dosage: FREQUENCY UNKNOWN
     Route: 065

REACTIONS (7)
  - Drug reaction with eosinophilia and systemic symptoms [Unknown]
  - Dermatitis exfoliative [Unknown]
  - Hepatitis [Unknown]
  - Blood lactate dehydrogenase increased [Unknown]
  - Rash [Unknown]
  - Pyrexia [Unknown]
  - Aspartate aminotransferase abnormal [Unknown]
